FAERS Safety Report 15168726 (Version 3)
Quarter: 2018Q3

REPORT INFORMATION
  Report Type: Report from Study
  Country: None (occurrence: US)
  Receive Date: 20180720
  Receipt Date: 20180929
  Transmission Date: 20181010
  Serious: Yes (Other)
  Sender: FDA-Public Use
  Company Number: US-ABBVIE-17K-163-2202468-00

PATIENT
  Age: 56 Year
  Sex: Female

DRUGS (4)
  1. HUMIRA [Suspect]
     Active Substance: ADALIMUMAB
     Route: 058
     Dates: start: 201804
  2. HUMIRA [Suspect]
     Active Substance: ADALIMUMAB
     Indication: ANKYLOSING SPONDYLITIS
     Route: 058
     Dates: start: 201507, end: 2016
  3. HUMIRA [Suspect]
     Active Substance: ADALIMUMAB
     Route: 058
     Dates: start: 20171219, end: 2018
  4. LYRICA [Suspect]
     Active Substance: PREGABALIN
     Indication: PRODUCT USED FOR UNKNOWN INDICATION
     Dosage: WEANING OFF
     Route: 065

REACTIONS (32)
  - Malaise [Unknown]
  - Fatigue [Recovered/Resolved]
  - Emotional distress [Not Recovered/Not Resolved]
  - Dyspnoea [Unknown]
  - Joint swelling [Not Recovered/Not Resolved]
  - Lung disorder [Unknown]
  - Discomfort [Not Recovered/Not Resolved]
  - Spinal operation [Unknown]
  - Joint range of motion decreased [Recovering/Resolving]
  - Mobility decreased [Recovering/Resolving]
  - Feeling hot [Unknown]
  - Loss of personal independence in daily activities [Not Recovered/Not Resolved]
  - Paraesthesia [Recovering/Resolving]
  - Gastrooesophageal reflux disease [Unknown]
  - Drug ineffective [Not Recovered/Not Resolved]
  - Pain in extremity [Not Recovered/Not Resolved]
  - Arthralgia [Not Recovered/Not Resolved]
  - Neck pain [Not Recovered/Not Resolved]
  - Arthralgia [Not Recovered/Not Resolved]
  - Nerve block [Unknown]
  - Hypotension [Unknown]
  - Fatigue [Unknown]
  - Hypoaesthesia [Recovering/Resolving]
  - Urinary tract infection [Unknown]
  - Musculoskeletal stiffness [Not Recovered/Not Resolved]
  - Rotator cuff syndrome [Unknown]
  - Asthenia [Unknown]
  - Dysstasia [Not Recovered/Not Resolved]
  - Weight increased [Unknown]
  - Nasopharyngitis [Unknown]
  - Back pain [Not Recovered/Not Resolved]
  - Gastric infection [Unknown]

NARRATIVE: CASE EVENT DATE: 201712
